FAERS Safety Report 19931861 (Version 1)
Quarter: 2021Q4

REPORT INFORMATION
  Report Type: Spontaneous
  Country: DE (occurrence: DE)
  Receive Date: 20211007
  Receipt Date: 20211007
  Transmission Date: 20220303
  Serious: Yes (Other)
  Sender: FDA-Public Use
  Company Number: DE-ABBOTT-2021A-1340621

PATIENT
  Age: 45 Year
  Sex: Female

DRUGS (3)
  1. PANCRELIPASE [Suspect]
     Active Substance: PANCRELIPASE
     Indication: Aplasia
     Dosage: DD: 4 DOSAGE FORMS (1-1-1-1)
     Route: 048
     Dates: start: 20210405, end: 2021
  2. PANCRELIPASE [Suspect]
     Active Substance: PANCRELIPASE
     Dosage: DD: 8 DOSAGE FORMS (2-2-2-2)
     Route: 048
     Dates: start: 2021
  3. PANTOPRAZOLE SODIUM [Concomitant]
     Active Substance: PANTOPRAZOLE SODIUM
     Indication: Gastrointestinal tract irritation
     Dosage: DOSE: AS REQUIRED; FREQUENCY- 1-1
     Route: 048
     Dates: start: 20210301

REACTIONS (3)
  - Malaise [Unknown]
  - Diarrhoea [Unknown]
  - Adverse drug reaction [Unknown]

NARRATIVE: CASE EVENT DATE: 20210828
